FAERS Safety Report 7530348-3 (Version None)
Quarter: 2011Q2

REPORT INFORMATION
  Report Type: 
  Country: None (occurrence: None)
  Receive Date: 20110607
  Receipt Date: 20110523
  Transmission Date: 20111010
  Serious: Yes (Hospitalization, Other)
  Sender: FDA-Public Use
  Company Number: US-UCBSA-033621

PATIENT

DRUGS (1)
  1. KEPPRA [Suspect]

REACTIONS (1)
  - APLASTIC ANAEMIA [None]
